FAERS Safety Report 6083791-6 (Version None)
Quarter: 2009Q1

REPORT INFORMATION
  Report Type: 
  Country: None (occurrence: None)
  Receive Date: 20090219
  Receipt Date: 20090209
  Transmission Date: 20090719
  Serious: Yes (Other)
  Sender: FDA-Public Use
  Company Number: BR-PFIZER INC-2009161317

PATIENT

DRUGS (1)
  1. ZYVOX [Suspect]
     Indication: FUNGAL INFECTION
     Dosage: 150 MG, 3X/DAY

REACTIONS (1)
  - CATHETER RELATED INFECTION [None]
